FAERS Safety Report 21041374 (Version 1)
Quarter: 2022Q3

REPORT INFORMATION
  Report Type: Spontaneous
  Country: AR (occurrence: AR)
  Receive Date: 20220705
  Receipt Date: 20220705
  Transmission Date: 20221027
  Serious: Yes (Death, Hospitalization)
  Sender: FDA-Public Use
  Company Number: AR-NOVOPROD-933632

PATIENT
  Sex: Female

DRUGS (1)
  1. NOVOSEVEN [Suspect]
     Active Substance: COAGULATION FACTOR VIIA RECOMBINANT HUMAN
     Indication: Acquired haemophilia
     Dosage: NOT REPORTED
     Dates: start: 20220628, end: 20220629

REACTIONS (2)
  - Cerebral haemorrhage [Fatal]
  - Intestinal haemorrhage [Fatal]
